FAERS Safety Report 17150956 (Version 1)
Quarter: 2019Q4

REPORT INFORMATION
  Report Type: Report from Study
  Country: CA (occurrence: CA)
  Receive Date: 20191213
  Receipt Date: 20191213
  Transmission Date: 20200122
  Serious: Yes (Other)
  Sender: FDA-Public Use
  Company Number: CA-GLAXOSMITHKLINE-CA2019AMR193635

PATIENT
  Sex: Female

DRUGS (9)
  1. BREO ELLIPTA [Suspect]
     Active Substance: FLUTICASONE FUROATE\VILANTEROL TRIFENATATE
     Indication: PRODUCT USED FOR UNKNOWN INDICATION
     Dosage: 1 PUFF(S), QD
  2. TUDORZA [Suspect]
     Active Substance: ACLIDINIUM BROMIDE
     Indication: PRODUCT USED FOR UNKNOWN INDICATION
     Dosage: 1 PUFF(S), BID
  3. MEPOLIZUMAB [Suspect]
     Active Substance: MEPOLIZUMAB
     Dosage: 100 MG, Z,MONTHLY
     Route: 042
  4. SALBUTAMOL [Suspect]
     Active Substance: ALBUTEROL
     Indication: PRODUCT USED FOR UNKNOWN INDICATION
     Dosage: UNK UNK, QD
     Route: 055
  5. MEPOLIZUMAB [Suspect]
     Active Substance: MEPOLIZUMAB
     Indication: ASTHMA
     Dosage: 100 MG, Z MONTHLY
     Dates: start: 20180605
  6. PREDNISONE. [Suspect]
     Active Substance: PREDNISONE
     Indication: ASTHMA
     Dosage: UNK
  7. ALVESCO [Suspect]
     Active Substance: CICLESONIDE
     Indication: PRODUCT USED FOR UNKNOWN INDICATION
     Dosage: UNK
  8. VENTOLIN [Suspect]
     Active Substance: ALBUTEROL SULFATE
     Indication: PRODUCT USED FOR UNKNOWN INDICATION
     Dosage: 2 PUFF(S),PRN
  9. ADVAIR HFA [Suspect]
     Active Substance: FLUTICASONE PROPIONATE\SALMETEROL XINAFOATE
     Indication: PRODUCT USED FOR UNKNOWN INDICATION
     Dosage: UNK

REACTIONS (18)
  - Unevaluable event [Unknown]
  - Interstitial lung disease [Unknown]
  - Nasal congestion [Unknown]
  - Dyspnoea [Unknown]
  - Asthma [Unknown]
  - Pneumonia [Unknown]
  - Hypoxia [Unknown]
  - Wheezing [Unknown]
  - Tremor [Unknown]
  - Chronic obstructive pulmonary disease [Unknown]
  - Loss of personal independence in daily activities [Unknown]
  - Depression [Unknown]
  - Drug ineffective [Unknown]
  - Middle insomnia [Unknown]
  - Asthma-chronic obstructive pulmonary disease overlap syndrome [Unknown]
  - Lung infiltration [Unknown]
  - Cough [Unknown]
  - Wheelchair user [Unknown]
